FAERS Safety Report 9976482 (Version 1)
Quarter: 2014Q1

REPORT INFORMATION
  Report Type: Report from Study
  Country: US (occurrence: US)
  Receive Date: 20140306
  Receipt Date: 20140306
  Transmission Date: 20141002
  Serious: No
  Sender: FDA-Public Use
  Company Number: US-ABBVIE-13P-163-1167148-00

PATIENT
  Age: 22 Year
  Sex: Female

DRUGS (8)
  1. HUMIRA [Suspect]
     Indication: JUVENILE IDIOPATHIC ARTHRITIS
     Dates: start: 201210, end: 201306
  2. HUMIRA [Suspect]
  3. HUMIRA [Suspect]
     Dates: start: 201308
  4. METHOTREXATE [Concomitant]
     Indication: JUVENILE IDIOPATHIC ARTHRITIS
  5. FOLIC ACID [Concomitant]
     Indication: PRODUCT USED FOR UNKNOWN INDICATION
  6. NEXIUM [Concomitant]
     Indication: GASTROOESOPHAGEAL REFLUX DISEASE
     Dosage: 40MG DAILY
  7. RESTASIS [Concomitant]
     Indication: DRY EYE
     Dosage: BOTH EYES
  8. LUBRICANT DROPS [Concomitant]
     Indication: PRODUCT USED FOR UNKNOWN INDICATION
     Dosage: BOTH EYES

REACTIONS (2)
  - Contusion [Not Recovered/Not Resolved]
  - Uveitis [Not Recovered/Not Resolved]
